FAERS Safety Report 17659832 (Version 1)
Quarter: 2020Q2

REPORT INFORMATION
  Report Type: Spontaneous
  Country: US (occurrence: US)
  Receive Date: 20200413
  Receipt Date: 20200413
  Transmission Date: 20200713
  Serious: No
  Sender: FDA-Public Use
  Company Number: US-BION-008144

PATIENT
  Age: 89 Year
  Sex: Male
  Weight: 77 kg

DRUGS (1)
  1. ALEVE EASY OPEN ARTHRITIS CAP [Suspect]
     Active Substance: NAPROXEN SODIUM
     Indication: MYALGIA
     Route: 048
     Dates: start: 20190716

REACTIONS (2)
  - Therapeutic response unexpected [Unknown]
  - Extra dose administered [Not Recovered/Not Resolved]

NARRATIVE: CASE EVENT DATE: 20190716
